FAERS Safety Report 4431246-4 (Version None)
Quarter: 2004Q3

REPORT INFORMATION
  Report Type: 
  Country: None (occurrence: None)
  Receive Date: 20040818
  Receipt Date: 20040804
  Transmission Date: 20050211
  Serious: Yes (Death, Hospitalization)
  Sender: FDA-Public Use
  Company Number: FR_040804582

PATIENT
  Age: 50 Year
  Sex: Male

DRUGS (5)
  1. GEMCITABINE HYDROCHLORIDE-IV (GEMCITABINE) [Suspect]
     Indication: METASTASES TO LUNG
     Dosage: 1200 G/M2
  2. AMITRIPTYLINE HCL [Concomitant]
  3. CLONAZEPAM [Concomitant]
  4. MORPHINE [Concomitant]
  5. ACETAMINOPHEN [Concomitant]

REACTIONS (16)
  - ERYTHEMA [None]
  - HAEMOGLOBIN DECREASED [None]
  - HYPERAESTHESIA [None]
  - LIPOATROPHY [None]
  - LYMPHOCYTIC INFILTRATION [None]
  - MALIGNANT NEOPLASM PROGRESSION [None]
  - METASTASES TO BONE [None]
  - METASTASES TO LUNG [None]
  - METASTATIC CARCINOMA OF THE BLADDER [None]
  - OEDEMA PERIPHERAL [None]
  - PLATELET COUNT DECREASED [None]
  - PURPURA [None]
  - SCLERODERMA [None]
  - SKIN HYPERPIGMENTATION [None]
  - SKIN WARM [None]
  - WEIGHT INCREASED [None]
